FAERS Safety Report 7618363-2 (Version None)
Quarter: 2011Q3

REPORT INFORMATION
  Report Type: 
  Country: None (occurrence: None)
  Receive Date: 20110718
  Receipt Date: 20110706
  Transmission Date: 20111222
  Serious: Yes (Other)
  Sender: FDA-Public Use
  Company Number: PHHY2011US25659

PATIENT
  Sex: Male
  Weight: 81.995 kg

DRUGS (6)
  1. GLEEVEC [Suspect]
     Indication: CHRONIC MYELOID LEUKAEMIA
     Dosage: 400 MG, DAILY
     Route: 048
     Dates: start: 20050601
  2. GLEEVEC [Suspect]
     Dosage: 200 MG, DAILY
     Route: 048
  3. GLEEVEC [Suspect]
     Dosage: 400 MG, QOD, NOW ALTERNATES 400 AND 200MG EVERY OTHER DAY
     Route: 048
  4. GLEEVEC [Suspect]
     Dosage: 400 MG, DAILY
     Route: 048
     Dates: start: 20070827
  5. GLEEVEC [Suspect]
     Dosage: 200 MG, QOD, NOW ALTERNATES 400 AND 200MG EVERY OTHER DAY
  6. GLEEVEC [Suspect]
     Dosage: 200 MG, DAILY
     Route: 048
     Dates: start: 20101201

REACTIONS (11)
  - HAEMORRHOIDAL HAEMORRHAGE [None]
  - FATIGUE [None]
  - CHROMOSOME ANALYSIS ABNORMAL [None]
  - MUSCULAR WEAKNESS [None]
  - ANAEMIA [None]
  - HEART SOUNDS ABNORMAL [None]
  - OCCULT BLOOD POSITIVE [None]
  - ASTHENIA [None]
  - MUSCULOSKELETAL DISCOMFORT [None]
  - GASTRITIS [None]
  - FULL BLOOD COUNT ABNORMAL [None]
